FAERS Safety Report 17545026 (Version 1)
Quarter: 2020Q1

REPORT INFORMATION
  Report Type: Spontaneous
  Country: FR (occurrence: FR)
  Receive Date: 20200316
  Receipt Date: 20200316
  Transmission Date: 20200409
  Serious: Yes (Hospitalization)
  Sender: FDA-Public Use
  Company Number: FR-ELI_LILLY_AND_COMPANY-FR202003001321

PATIENT
  Age: 18 Year
  Sex: Female

DRUGS (2)
  1. LOXAPAC [LOXAPINE SUCCINATE] [Suspect]
     Active Substance: LOXAPINE SUCCINATE
     Indication: INTENTIONAL OVERDOSE
     Dosage: 500 MG, TOTAL DOSE
     Route: 048
     Dates: start: 20200113, end: 20200113
  2. PROZAC [Suspect]
     Active Substance: FLUOXETINE HYDROCHLORIDE
     Indication: INTENTIONAL OVERDOSE
     Dosage: 200 MG, TOTAL DOSE
     Route: 048
     Dates: start: 20200113, end: 20200113

REACTIONS (5)
  - Seizure [Recovered/Resolved]
  - Poisoning deliberate [Recovered/Resolved]
  - Sinus tachycardia [Recovered/Resolved]
  - Coma [Recovered/Resolved]
  - Intentional overdose [Unknown]

NARRATIVE: CASE EVENT DATE: 20200113
